FAERS Safety Report 4483931-6 (Version None)
Quarter: 2004Q4

REPORT INFORMATION
  Report Type: 
  Country: None (occurrence: None)
  Receive Date: 20041022
  Receipt Date: 20041022
  Transmission Date: 20050328
  Serious: Yes (Hospitalization)
  Sender: FDA-Public Use
  Company Number: None

PATIENT
  Age: 69 Year
  Sex: Female
  Weight: 113.3993 kg

DRUGS (10)
  1. TRAMADOL HCL [Suspect]
     Indication: OSTEOARTHRITIS
     Dosage: 1-2 TABS Q 4-6 HOURS ORAL
     Route: 048
     Dates: start: 20040907, end: 20041013
  2. TRAMADOL HCL [Suspect]
     Indication: PAIN
     Dosage: 1-2 TABS Q 4-6 HOURS ORAL
     Route: 048
     Dates: start: 20040907, end: 20041013
  3. KCL SUPPLEMENT [Concomitant]
  4. DOXAZOSIN [Concomitant]
  5. FUROSEMIDE [Concomitant]
  6. ASPIPRIN [Concomitant]
  7. LISINOPRIL [Concomitant]
  8. LIPITOR [Concomitant]
  9. MULTI-VITAMINS [Concomitant]
  10. CHLORPHENIRAMINE MALEATE [Concomitant]

REACTIONS (9)
  - AFFECT LABILITY [None]
  - CONFUSIONAL STATE [None]
  - DELUSION [None]
  - DISORIENTATION [None]
  - EXCESSIVE SEXUAL FANTASIES [None]
  - INSOMNIA [None]
  - PARANOIA [None]
  - SEXUAL DYSFUNCTION [None]
  - THINKING ABNORMAL [None]
